FAERS Safety Report 15860178 (Version 1)
Quarter: 2019Q1

REPORT INFORMATION
  Report Type: Spontaneous
  Country: FR (occurrence: FR)
  Receive Date: 20190123
  Receipt Date: 20190123
  Transmission Date: 20190417
  Serious: Yes (Hospitalization)
  Sender: FDA-Public Use
  Company Number: PHHY2019FR012607

PATIENT
  Age: 86 Year
  Sex: Male
  Weight: 82 kg

DRUGS (2)
  1. MINISINTROM [Interacting]
     Active Substance: ACENOCOUMAROL
     Indication: THROMBOSIS PROPHYLAXIS
     Dosage: 1 MG, TID
     Route: 048
     Dates: end: 20181126
  2. ATORVASTATINE [Suspect]
     Active Substance: ATORVASTATIN
     Indication: PROPHYLAXIS
     Dosage: 10 MG, QD
     Route: 048

REACTIONS (2)
  - Anaemia [Recovered/Resolved]
  - Haematoma [Not Recovered/Not Resolved]

NARRATIVE: CASE EVENT DATE: 20181126
